FAERS Safety Report 22377810 (Version 1)
Quarter: 2023Q2

REPORT INFORMATION
  Report Type: Report from Study
  Country: US (occurrence: US)
  Receive Date: 20230529
  Receipt Date: 20230529
  Transmission Date: 20230722
  Serious: Yes (Other)
  Sender: FDA-Public Use
  Company Number: US-ABBVIE-5182951

PATIENT
  Sex: Female

DRUGS (1)
  1. VENCLEXTA [Suspect]
     Active Substance: VENETOCLAX
     Indication: Chronic myeloid leukaemia
     Dosage: FORM STRENGTH WAS 100 MILLIGRAMS
     Route: 048

REACTIONS (3)
  - Transfusion [Unknown]
  - Platelet transfusion [Unknown]
  - Off label use [Unknown]
